FAERS Safety Report 9116945 (Version 4)
Quarter: 2013Q1

REPORT INFORMATION
  Report Type: Spontaneous
  Country: US (occurrence: US)
  Receive Date: 20130225
  Receipt Date: 20130319
  Transmission Date: 20140127
  Serious: No
  Sender: FDA-Public Use
  Company Number: US-PFIZER INC-2013067576

PATIENT
  Age: 61 Year
  Sex: Female
  Weight: 54.42 kg

DRUGS (3)
  1. ALTACE [Suspect]
     Indication: HYPERTENSION
     Dosage: 5 MG, 2X/DAY
     Route: 048
     Dates: start: 20061014
  2. ALTACE [Suspect]
     Dosage: 2.5 MG, 1X/DAY
     Dates: start: 20130118
  3. CLONIDINE [Concomitant]
     Indication: HYPERTENSION
     Dosage: 0.1 MG, EVERY 6 HRS IF NEEDED
     Dates: start: 20130121

REACTIONS (1)
  - Drug ineffective [Recovered/Resolved]
